FAERS Safety Report 4631019-3 (Version None)
Quarter: 2005Q2

REPORT INFORMATION
  Report Type: 
  Country: None (occurrence: None)
  Receive Date: 20050406
  Receipt Date: 20050406
  Transmission Date: 20051028
  Serious: Yes (Hospitalization)
  Sender: FDA-Public Use
  Company Number: None

PATIENT
  Age: 24 Month
  Sex: Female
  Weight: 16 kg

DRUGS (1)
  1. CORISTINA D TABLET [Suspect]
     Indication: ACCIDENTAL EXPOSURE
     Dosage: ORAL
     Route: 048
     Dates: start: 20050322, end: 20050322

REACTIONS (2)
  - ACCIDENTAL EXPOSURE [None]
  - DIARRHOEA [None]
